FAERS Safety Report 9136050 (Version 1)
Quarter: 2013Q1

REPORT INFORMATION
  Report Type: Spontaneous
  Country: US (occurrence: US)
  Receive Date: 20130304
  Receipt Date: 20130304
  Transmission Date: 20140127
  Serious: No
  Sender: FDA-Public Use
  Company Number: US-ABBOTT-12P-163-1004462-00

PATIENT
  Age: 51 Year
  Sex: Male

DRUGS (1)
  1. ANDROGEL [Suspect]
     Indication: KLINEFELTER^S SYNDROME

REACTIONS (2)
  - Anger [Not Recovered/Not Resolved]
  - Agitation [Unknown]
